FAERS Safety Report 14471575 (Version 1)
Quarter: 2018Q1

REPORT INFORMATION
  Report Type: Spontaneous
  Country: RU (occurrence: RU)
  Receive Date: 20180131
  Receipt Date: 20180131
  Transmission Date: 20180509
  Serious: Yes (Other)
  Sender: FDA-Public Use
  Company Number: RU-PFIZER INC-2018035780

PATIENT
  Age: 79 Year
  Sex: Female

DRUGS (4)
  1. LOZAP /01121602/ [Concomitant]
     Active Substance: LOSARTAN POTASSIUM
  2. ACETYLSALICYLIC ACID [Concomitant]
     Active Substance: ASPIRIN
     Dosage: UNK
  3. CONCOR [Concomitant]
     Active Substance: BISOPROLOL FUMARATE
  4. GABAPENTIN. [Suspect]
     Active Substance: GABAPENTIN
     Indication: RADICULOPATHY
     Dosage: 300 MG, 3X/DAY

REACTIONS (2)
  - Hypokinesia [Recovered/Resolved]
  - Gait disturbance [Recovered/Resolved]
